FAERS Safety Report 4407387-4 (Version None)
Quarter: 2004Q3

REPORT INFORMATION
  Report Type: 
  Country: None (occurrence: None)
  Receive Date: 20040723
  Receipt Date: 20040712
  Transmission Date: 20050211
  Serious: No
  Sender: FDA-Public Use
  Company Number: 2004UW11915

PATIENT
  Age: 64 Year
  Sex: Male

DRUGS (4)
  1. CRESTOR [Suspect]
     Dosage: 10 MG PO
     Route: 048
     Dates: start: 20031001, end: 20040201
  2. VIAGRA [Concomitant]
  3. ASPIRIN [Concomitant]
  4. ANTIBIOTIC [Concomitant]

REACTIONS (6)
  - APHASIA [None]
  - COGNITIVE DISORDER [None]
  - DIZZINESS [None]
  - HAEMORRHAGIC STROKE [None]
  - SINUS DISORDER [None]
  - TOOTH ABSCESS [None]
